FAERS Safety Report 19063746 (Version 1)
Quarter: 2021Q1

REPORT INFORMATION
  Report Type: Spontaneous
  Country: US (occurrence: US)
  Receive Date: 20210326
  Receipt Date: 20210326
  Transmission Date: 20210420
  Serious: No
  Sender: FDA-Public Use
  Company Number: US-ELI_LILLY_AND_COMPANY-US202103009084

PATIENT
  Sex: Female

DRUGS (1)
  1. RETEVMO [Suspect]
     Active Substance: SELPERCATINIB
     Indication: MIGRAINE
     Dosage: 100 MG, UNKNOWN
     Route: 065

REACTIONS (2)
  - Photosensitivity reaction [Recovered/Resolved]
  - Somnolence [Recovered/Resolved]
